FAERS Safety Report 10741834 (Version 1)
Quarter: 2015Q1

REPORT INFORMATION
  Report Type: Spontaneous
  Country: US (occurrence: US)
  Receive Date: 20150127
  Receipt Date: 20150127
  Transmission Date: 20150721
  Serious: Yes (Other)
  Sender: FDA-Public Use
  Company Number: US-CELGENEUS-USA-2014100844

PATIENT
  Age: 67 Year
  Sex: Male
  Weight: 61.29 kg

DRUGS (4)
  1. CYTOXAN [Concomitant]
     Active Substance: CYCLOPHOSPHAMIDE
     Indication: PLASMA CELL MYELOMA
     Route: 065
     Dates: start: 20140824, end: 20140921
  2. POMALYST [Suspect]
     Active Substance: POMALIDOMIDE
     Route: 048
     Dates: start: 20140929, end: 20141002
  3. POMALYST [Suspect]
     Active Substance: POMALIDOMIDE
     Indication: PLASMA CELL MYELOMA
     Route: 048
     Dates: start: 20140824, end: 20140928
  4. CYTOXAN [Concomitant]
     Active Substance: CYCLOPHOSPHAMIDE
     Route: 065
     Dates: start: 20140921, end: 20140929

REACTIONS (3)
  - Platelet count decreased [Recovering/Resolving]
  - Neutrophil count decreased [Unknown]
  - White blood cell count decreased [Recovering/Resolving]

NARRATIVE: CASE EVENT DATE: 20140902
